FAERS Safety Report 5572285-X (Version None)
Quarter: 2007Q4

REPORT INFORMATION
  Report Type: 
  Country: None (occurrence: None)
  Receive Date: 20071221
  Receipt Date: 20071211
  Transmission Date: 20080405
  Serious: Yes (Other)
  Sender: FDA-Public Use
  Company Number: US-PFIZER INC-2007104909

PATIENT
  Sex: Male
  Weight: 68.181 kg

DRUGS (1)
  1. DILANTIN [Suspect]
     Indication: EPILEPSY

REACTIONS (3)
  - BLOOD PRESSURE INCREASED [None]
  - HEART RATE INCREASED [None]
  - HYPOAESTHESIA [None]
